FAERS Safety Report 8155598-7 (Version None)
Quarter: 2012Q1

REPORT INFORMATION
  Report Type: 
  Country: None (occurrence: None)
  Receive Date: 20120222
  Receipt Date: 20120217
  Transmission Date: 20120608
  Serious: Yes (Other)
  Sender: FDA-Public Use
  Company Number: US-PFIZER INC-2012034121

PATIENT
  Sex: Male

DRUGS (4)
  1. BIAXIN [Suspect]
     Dosage: UNK
  2. XANAX [Suspect]
     Dosage: UNK
     Dates: start: 19860101
  3. ALPRAZOLAM [Suspect]
     Dosage: 0.5 MG, UNK
  4. ALPRAZOLAM [Suspect]
     Dosage: 1 MG, UNK

REACTIONS (8)
  - DRUG EFFECT INCREASED [None]
  - DEPENDENCE [None]
  - ANGER [None]
  - DRUG INEFFECTIVE [None]
  - FEELING ABNORMAL [None]
  - INSOMNIA [None]
  - NERVOUSNESS [None]
  - HYPOMETABOLISM [None]
